FAERS Safety Report 25388849 (Version 1)
Quarter: 2025Q2

REPORT INFORMATION
  Report Type: Spontaneous
  Country: SE (occurrence: SE)
  Receive Date: 20250603
  Receipt Date: 20250603
  Transmission Date: 20250716
  Serious: Yes (Life-Threatening, Hospitalization, Disabling)
  Sender: ACCORD
  Company Number: None

PATIENT
  Age: 36 Year
  Sex: Female
  Weight: 98 kg

DRUGS (8)
  1. QUETIAPINE [Suspect]
     Active Substance: QUETIAPINE
     Indication: Sleep disorder
     Dates: start: 20240628
  2. CELECOXIB [Suspect]
     Active Substance: CELECOXIB
     Indication: Intervertebral disc protrusion
     Dosage: STRENGTH: 200 MG, 1 TABLET DAILY
  3. KEPPRA [Concomitant]
     Active Substance: LEVETIRACETAM
     Dates: start: 20250327
  4. TRIMEPRAZINE [Concomitant]
     Active Substance: TRIMEPRAZINE
     Dates: start: 20241025
  5. SERTRALINE [Concomitant]
     Active Substance: SERTRALINE HYDROCHLORIDE
     Dates: start: 20250413
  6. ATARAX [Concomitant]
     Active Substance: HYDROXYZINE HYDROCHLORIDE
     Dates: start: 20250408
  7. PANTOPRAZOLE [Concomitant]
     Active Substance: PANTOPRAZOLE
     Dosage: 1 TABLET 1 TIME DAILY, PREFERABLY TAKEN IN PERIODS OF 2-4 WEEKS WITH PAUSE IN BETWEEN.
     Dates: start: 20241114
  8. KEPPRA [Concomitant]
     Active Substance: LEVETIRACETAM
     Dates: start: 20240917, end: 20250326

REACTIONS (6)
  - Scratch [Unknown]
  - Epistaxis [Unknown]
  - Seizure [Not Recovered/Not Resolved]
  - Disorientation [Unknown]
  - Epilepsy [Not Recovered/Not Resolved]
  - Tongue biting [Unknown]

NARRATIVE: CASE EVENT DATE: 20250508
